FAERS Safety Report 6751697-2 (Version None)
Quarter: 2010Q2

REPORT INFORMATION
  Report Type: 
  Country: None (occurrence: None)
  Receive Date: 20100602
  Receipt Date: 20100524
  Transmission Date: 20101027
  Serious: Yes (Hospitalization)
  Sender: FDA-Public Use
  Company Number: B0650690A

PATIENT
  Sex: Female

DRUGS (7)
  1. ZYLORIC [Suspect]
     Indication: GOUT
     Dosage: 200MG PER DAY
     Route: 048
     Dates: start: 20081201, end: 20091122
  2. GLAZIDIM [Suspect]
     Dosage: 2G PER DAY
     Route: 042
     Dates: start: 20091120, end: 20091122
  3. BACTRIM [Suspect]
     Dosage: 2U PER DAY
     Route: 048
     Dates: start: 20091120, end: 20091122
  4. TARGOCID [Suspect]
     Dosage: 400MG PER DAY
     Route: 042
     Dates: start: 20091120, end: 20091122
  5. MYELOSTIM [Concomitant]
  6. ETOPOSIDE [Concomitant]
  7. ZAVEDOS [Concomitant]

REACTIONS (3)
  - ANGIOEDEMA [None]
  - PURPURA [None]
  - RASH [None]
